FAERS Safety Report 15783682 (Version 1)
Quarter: 2019Q1

REPORT INFORMATION
  Report Type: Spontaneous
  Country: FR (occurrence: FR)
  Receive Date: 20190102
  Receipt Date: 20190102
  Transmission Date: 20190417
  Serious: Yes (Hospitalization, Other)
  Sender: FDA-Public Use
  Company Number: FR-PFIZER INC-2018533342

PATIENT
  Age: 36 Year
  Sex: Male

DRUGS (7)
  1. XEROQUEL [Concomitant]
     Active Substance: QUETIAPINE FUMARATE
     Dosage: 0-0-2
  2. IMOVANE [Suspect]
     Active Substance: ZOPICLONE
     Dosage: 0-0-1
     Route: 048
  3. IMOVANE [Suspect]
     Active Substance: ZOPICLONE
     Dosage: 14 DF, SINGLE
     Route: 048
     Dates: start: 20170505, end: 20170505
  4. SUBUTEX [Concomitant]
     Active Substance: BUPRENORPHINE HYDROCHLORIDE
     Dosage: 16 MG, DAILY
  5. PREGABALIN. [Suspect]
     Active Substance: PREGABALIN
     Dosage: 30 DF, SINGLE
     Route: 048
     Dates: start: 20170505, end: 20170505
  6. LOXAPAC [LOXAPINE SUCCINATE] [Suspect]
     Active Substance: LOXAPINE SUCCINATE
     Dosage: 60 DF, SINGLE
     Route: 048
     Dates: start: 20170505, end: 20170505
  7. LOXAPAC [LOXAPINE SUCCINATE] [Suspect]
     Active Substance: LOXAPINE SUCCINATE
     Dosage: 1-1-3
     Route: 048

REACTIONS (4)
  - Suicide attempt [Unknown]
  - Tachycardia [Recovered/Resolved]
  - Coma [Recovered/Resolved]
  - Overdose [Unknown]

NARRATIVE: CASE EVENT DATE: 20170505
